FAERS Safety Report 9288183 (Version 1)
Quarter: 2013Q2

REPORT INFORMATION
  Report Type: Spontaneous
  Country: US (occurrence: None)
  Receive Date: 20130513
  Receipt Date: 20130513
  Transmission Date: 20140414
  Serious: Yes (Other)
  Sender: FDA-Public Use
  Company Number: None

PATIENT
  Age: 40 Year
  Sex: Female
  Weight: 58.06 kg

DRUGS (2)
  1. LEVAQUIN [Suspect]
     Route: 048
     Dates: start: 20130419, end: 20130420
  2. LEVAQUIN [Suspect]
     Route: 048
     Dates: start: 20130419, end: 20130420

REACTIONS (7)
  - Agitation [None]
  - Insomnia [None]
  - Palpitations [None]
  - Anxiety [None]
  - Tremor [None]
  - Hyperhidrosis [None]
  - Hallucination [None]
